FAERS Safety Report 18785277 (Version 23)
Quarter: 2023Q1

REPORT INFORMATION
  Report Type: Report from Study
  Country: US (occurrence: US)
  Receive Date: 20210125
  Receipt Date: 20230327
  Transmission Date: 20230418
  Serious: Yes (Hospitalization, Other)
  Sender: FDA-Public Use
  Company Number: US-TAKEDA-2021TUS004541

PATIENT
  Age: 8 Year
  Sex: Male
  Weight: 28.571 kg

DRUGS (31)
  1. HUMAN IMMUNOGLOBULIN G [Suspect]
     Active Substance: HUMAN IMMUNOGLOBULIN G
     Indication: Congenital hypogammaglobulinaemia
     Dosage: 6 GRAM, Q2WEEKS
     Route: 058
     Dates: start: 20210109
  2. HUMAN IMMUNOGLOBULIN G [Suspect]
     Active Substance: HUMAN IMMUNOGLOBULIN G
     Indication: Severe myoclonic epilepsy of infancy
     Dosage: 8 GRAM, Q2WEEKS
     Route: 058
     Dates: start: 20210109
  3. HUMAN IMMUNOGLOBULIN G [Suspect]
     Active Substance: HUMAN IMMUNOGLOBULIN G
     Dosage: 5 GRAM
     Route: 058
     Dates: start: 20210109
  4. HUMAN IMMUNOGLOBULIN G [Suspect]
     Active Substance: HUMAN IMMUNOGLOBULIN G
     Dosage: 5 GRAM, 1/WEEK
     Route: 058
     Dates: start: 20210109
  5. ACETAMINOPHEN [Concomitant]
     Active Substance: ACETAMINOPHEN
     Indication: Product used for unknown indication
     Dosage: UNK
     Route: 065
  6. DIPHENHYDRAMINE [Concomitant]
     Active Substance: DIPHENHYDRAMINE
     Indication: Product used for unknown indication
     Dosage: UNK
     Route: 065
  7. LIDOCAINE [Concomitant]
     Active Substance: LIDOCAINE
     Indication: Product used for unknown indication
     Dosage: UNK
     Route: 065
  8. EPINEPHRINE [Concomitant]
     Active Substance: EPINEPHRINE
     Indication: Product used for unknown indication
     Dosage: UNK
     Route: 065
  9. STRATTERA [Concomitant]
     Active Substance: ATOMOXETINE HYDROCHLORIDE
     Indication: Product used for unknown indication
     Dosage: UNK
     Route: 065
  10. GEODON [Concomitant]
     Active Substance: ZIPRASIDONE HYDROCHLORIDE\ZIPRASIDONE MESYLATE
     Indication: Product used for unknown indication
     Dosage: UNK
     Route: 065
  11. CLOBAZAM [Concomitant]
     Active Substance: CLOBAZAM
     Indication: Product used for unknown indication
     Dosage: UNK
     Route: 065
  12. DEPAKOTE [Concomitant]
     Active Substance: DIVALPROEX SODIUM
     Indication: Product used for unknown indication
     Dosage: UNK
     Route: 065
  13. ZOFRAN [Concomitant]
     Active Substance: ONDANSETRON HYDROCHLORIDE
     Indication: Product used for unknown indication
     Dosage: UNK
     Route: 065
  14. ADVAIR HFA [Concomitant]
     Active Substance: FLUTICASONE PROPIONATE\SALMETEROL XINAFOATE
     Indication: Product used for unknown indication
     Dosage: UNK
     Route: 065
  15. LAMICTAL [Concomitant]
     Active Substance: LAMOTRIGINE
     Indication: Product used for unknown indication
     Dosage: UNK
     Route: 065
  16. ALBUTEROL SULFATE [Concomitant]
     Active Substance: ALBUTEROL SULFATE
     Indication: Product used for unknown indication
     Dosage: UNK
     Route: 065
  17. DESONIDE [Concomitant]
     Active Substance: DESONIDE
     Indication: Product used for unknown indication
     Dosage: UNK
     Route: 065
  18. IBU [Concomitant]
     Active Substance: IBUPROFEN
     Indication: Product used for unknown indication
     Dosage: UNK
     Route: 065
  19. CLONAZEPAM [Concomitant]
     Active Substance: CLONAZEPAM
     Indication: Product used for unknown indication
     Dosage: UNK
     Route: 065
  20. TRIAMCINOLONE [Concomitant]
     Active Substance: TRIAMCINOLONE
     Indication: Product used for unknown indication
     Dosage: UNK
     Route: 065
  21. BACTRIM [Concomitant]
     Active Substance: SULFAMETHOXAZOLE\TRIMETHOPRIM
     Indication: Product used for unknown indication
     Dosage: UNK
     Route: 065
  22. TYLENOL EXTRA STRENGTH [Concomitant]
     Active Substance: ACETAMINOPHEN
     Indication: Product used for unknown indication
     Dosage: UNK
     Route: 065
  23. EUCRISA [Concomitant]
     Active Substance: CRISABOROLE
     Indication: Product used for unknown indication
     Dosage: UNK
     Route: 065
  24. VOLTAREN [Concomitant]
     Active Substance: DICLOFENAC SODIUM
     Indication: Product used for unknown indication
     Dosage: UNK
     Route: 065
  25. VALTOCO [Concomitant]
     Active Substance: DIAZEPAM
     Indication: Product used for unknown indication
     Dosage: UNK
     Route: 065
  26. MUPIROCIN [Concomitant]
     Active Substance: MUPIROCIN
     Indication: Product used for unknown indication
     Dosage: UNK
     Route: 065
  27. DIPHENHYDRAMINE HYDROCHLORIDE [Concomitant]
     Active Substance: DIPHENHYDRAMINE HYDROCHLORIDE
     Indication: Product used for unknown indication
     Dosage: UNK
     Route: 065
  28. LAMICTAL XR [Concomitant]
     Active Substance: LAMOTRIGINE
     Indication: Product used for unknown indication
     Dosage: UNK
     Route: 065
  29. Lmx [Concomitant]
     Indication: Product used for unknown indication
     Dosage: UNK
     Route: 065
  30. PAIN EASE [Concomitant]
     Active Substance: CAMPHOR OIL\MENTHOL\METHYL SALICYLATE
     Indication: Product used for unknown indication
     Dosage: UNK
     Route: 065
  31. ALBUTEROL [Concomitant]
     Active Substance: ALBUTEROL
     Indication: Product used for unknown indication
     Dosage: UNK
     Route: 065

REACTIONS (34)
  - Pneumonia [Unknown]
  - Influenza [Unknown]
  - Malnutrition [Unknown]
  - Haematochezia [Unknown]
  - Dehydration [Unknown]
  - Upper respiratory fungal infection [Unknown]
  - Autoimmune thyroiditis [Unknown]
  - Sinusitis bacterial [Unknown]
  - Hypothyroidism [Unknown]
  - Gastrointestinal disorder [Unknown]
  - Gastrointestinal viral infection [Unknown]
  - Viral infection [Unknown]
  - Hand-foot-and-mouth disease [Unknown]
  - Eating disorder [Unknown]
  - Nasopharyngitis [Unknown]
  - Upper respiratory tract infection [Unknown]
  - Sinusitis [Unknown]
  - COVID-19 [Recovering/Resolving]
  - Herpes zoster [Recovered/Resolved]
  - Peripheral swelling [Unknown]
  - Viral rash [Unknown]
  - Arthropod sting [Unknown]
  - Gastroenteritis viral [Unknown]
  - Dermatitis contact [Unknown]
  - Ear infection [Unknown]
  - Respiratory syncytial virus infection [Unknown]
  - Influenza [Unknown]
  - Burning sensation [Unknown]
  - Fatigue [Unknown]
  - Vomiting [Unknown]
  - Pyrexia [Unknown]
  - Headache [Unknown]
  - Rash [Unknown]
  - Insurance issue [Unknown]

NARRATIVE: CASE EVENT DATE: 20210813
